FAERS Safety Report 22099566 (Version 1)
Quarter: 2023Q1

REPORT INFORMATION
  Report Type: Spontaneous
  Country: IT (occurrence: IT)
  Receive Date: 20230315
  Receipt Date: 20230315
  Transmission Date: 20230418
  Serious: Yes (Other)
  Sender: FDA-Public Use
  Company Number: None

PATIENT
  Age: 60 Year
  Sex: Male

DRUGS (1)
  1. DICLOFENAC [Suspect]
     Active Substance: DICLOFENAC
     Indication: Product used for unknown indication
     Dosage: UNK (VIA SOMMINISTRAZIONE: ORALE)
     Route: 048
     Dates: start: 20221026, end: 20221026

REACTIONS (1)
  - Rhinitis allergic [Recovering/Resolving]

NARRATIVE: CASE EVENT DATE: 20221026
